FAERS Safety Report 18898545 (Version 2)
Quarter: 2021Q1

REPORT INFORMATION
  Report Type: Spontaneous
  Country: US (occurrence: US)
  Receive Date: 20210216
  Receipt Date: 20210301
  Transmission Date: 20210420
  Serious: Yes (Other)
  Sender: FDA-Public Use
  Company Number: US-PFIZER INC-2021114413

PATIENT
  Age: 46 Year
  Sex: Female
  Weight: 65 kg

DRUGS (10)
  1. BACTERIOSTATIC SODIUM CHLORIDE [Suspect]
     Active Substance: SODIUM CHLORIDE
     Dosage: 20 L
  2. ISOFLURANE. [Concomitant]
     Active Substance: ISOFLURANE
     Indication: ANAESTHESIA
     Dosage: UNK
  3. ALBUMIN [Suspect]
     Active Substance: ALBUMIN HUMAN
     Dosage: 1000 ML
  4. OXYGEN. [Concomitant]
     Active Substance: OXYGEN
     Indication: ANAESTHESIA
     Dosage: UNK
  5. ALBUMIN [Suspect]
     Active Substance: ALBUMIN HUMAN
     Dosage: 1750 ML
  6. FENTANYL. [Concomitant]
     Active Substance: FENTANYL
     Indication: ANAESTHESIA
     Dosage: UNK
  7. CISATRACURIUM. [Concomitant]
     Active Substance: CISATRACURIUM
     Indication: ANAESTHESIA
     Dosage: UNK
  8. BACTERIOSTATIC SODIUM CHLORIDE [Suspect]
     Active Substance: SODIUM CHLORIDE
     Dosage: 5000 ML
  9. THIOPENTAL SODIUM. [Concomitant]
     Active Substance: THIOPENTAL SODIUM
     Indication: ANAESTHESIA
     Dosage: UNK
  10. PLASMA [Concomitant]
     Active Substance: HUMAN PLASMA
     Indication: HAEMORRHAGE
     Dosage: 2 UNITS

REACTIONS (3)
  - Acidosis hyperchloraemic [Recovered/Resolved]
  - Overdose [Recovered/Resolved]
  - Anion gap decreased [Recovered/Resolved]
